FAERS Safety Report 11077666 (Version 2)
Quarter: 2015Q2

REPORT INFORMATION
  Report Type: Spontaneous
  Country: US (occurrence: US)
  Receive Date: 20150430
  Receipt Date: 20150603
  Transmission Date: 20150821
  Serious: No
  Sender: FDA-Public Use
  Company Number: US-ROCHE-1570049

PATIENT
  Sex: Male
  Weight: 62.2 kg

DRUGS (1)
  1. XELODA [Suspect]
     Active Substance: CAPECITABINE
     Indication: COLON CANCER METASTATIC
     Dosage: SEVEN DAYS ON, SEVEN DAYS OFF, THEN REPEAT
     Route: 048
     Dates: start: 20150306, end: 20150331

REACTIONS (1)
  - Abdominal pain upper [Unknown]
